FAERS Safety Report 12597379 (Version 3)
Quarter: 2016Q3

REPORT INFORMATION
  Report Type: Report from Study
  Country: CA (occurrence: CA)
  Receive Date: 20160726
  Receipt Date: 20160906
  Transmission Date: 20161109
  Serious: Yes (Death, Hospitalization)
  Sender: FDA-Public Use
  Company Number: PHHY2013CA143007

PATIENT
  Age: 72 Year
  Sex: Male

DRUGS (4)
  1. SANDOSTATIN [Suspect]
     Active Substance: OCTREOTIDE ACETATE
     Indication: DIARRHOEA
     Dosage: UNK UG, UNK
     Route: 058
     Dates: start: 20130304, end: 20160404
  2. SANDOSTATIN LAR DEPOT [Suspect]
     Active Substance: OCTREOTIDE ACETATE
     Dosage: 30 MG, QMO
     Route: 030
     Dates: start: 20160404, end: 20160803
  3. SANDOSTATIN LAR DEPOT [Suspect]
     Active Substance: OCTREOTIDE ACETATE
     Dosage: 30 MG, QMO
     Route: 030
     Dates: start: 20131202, end: 201511
  4. SANDOSTATIN LAR DEPOT [Suspect]
     Active Substance: OCTREOTIDE ACETATE
     Indication: DIARRHOEA
     Dosage: 20 MG, QMO (ONCE A MONTH)
     Route: 030
     Dates: start: 20130402

REACTIONS (15)
  - Fatigue [Unknown]
  - Mobility decreased [Unknown]
  - Eating disorder [Unknown]
  - Pneumonia [Unknown]
  - Nausea [Unknown]
  - Drug ineffective [Unknown]
  - Product use issue [Unknown]
  - Asthenia [Unknown]
  - Rash [Unknown]
  - Blood pressure diastolic decreased [Unknown]
  - Weight decreased [Unknown]
  - Death [Fatal]
  - Needle issue [Unknown]
  - Herpes zoster [Unknown]
  - Diarrhoea [Not Recovered/Not Resolved]

NARRATIVE: CASE EVENT DATE: 20140630
